FAERS Safety Report 4613219-1 (Version None)
Quarter: 2005Q1

REPORT INFORMATION
  Report Type: 
  Country: None (occurrence: None)
  Receive Date: 20050315
  Receipt Date: 20050301
  Transmission Date: 20050727
  Serious: No
  Sender: FDA-Public Use
  Company Number: MK200503-0011-1

PATIENT
  Age: 75 Year
  Sex: Male

DRUGS (1)
  1. OPTIRAY 300 [Suspect]
     Indication: COMPUTERISED TOMOGRAM
     Dosage: 100 ML, SINGLE USE
     Dates: start: 20050118, end: 20050118

REACTIONS (4)
  - ARTHRALGIA [None]
  - DIARRHOEA [None]
  - PYREXIA [None]
  - TREMOR [None]
